FAERS Safety Report 22042582 (Version 1)
Quarter: 2023Q1

REPORT INFORMATION
  Report Type: Spontaneous
  Country: CN (occurrence: CN)
  Receive Date: 20230228
  Receipt Date: 20230228
  Transmission Date: 20230418
  Serious: Yes (Other)
  Sender: FDA-Public Use
  Company Number: CN-SUN PHARMACEUTICAL INDUSTRIES LTD-2023R1-380706

PATIENT
  Age: 68 Year
  Sex: Male

DRUGS (3)
  1. DOCETAXEL [Suspect]
     Active Substance: DOCETAXEL
     Indication: Radiochemotherapy
     Dosage: UNK
     Route: 065
  2. CARBOPLATIN [Suspect]
     Active Substance: CARBOPLATIN
     Indication: Radiochemotherapy
     Dosage: UNK
     Route: 065
  3. PEMBROLIZUMAB [Concomitant]
     Active Substance: PEMBROLIZUMAB
     Indication: Radiochemotherapy
     Dosage: UNK
     Route: 065

REACTIONS (5)
  - Blood glucose increased [Unknown]
  - Alopecia [Unknown]
  - Myelosuppression [Unknown]
  - Pneumonia [Unknown]
  - Gastrooesophageal reflux disease [Unknown]
